FAERS Safety Report 24443638 (Version 2)
Quarter: 2024Q4

REPORT INFORMATION
  Report Type: Spontaneous
  Country: JP (occurrence: JP)
  Receive Date: 20241016
  Receipt Date: 20241017
  Transmission Date: 20250115
  Serious: No
  Sender: ROCHE
  Company Number: JP-ROCHE-1616409

PATIENT
  Age: 3 Year
  Sex: Male
  Weight: 8.0 kg

DRUGS (3)
  1. RITUXAN [Suspect]
     Active Substance: RITUXIMAB
     Indication: Nephrotic syndrome
     Dosage: CONSEQUETIVE DOSES ON 04/SEP/2013, 24/SEP/2013, 01/OCT/2013, 27/DEC/2013, 09/JAN/2014, 12/FEB/2014,
     Route: 041
     Dates: start: 20130828, end: 20130828
  2. MYCOPHENOLATE MOFETIL [Concomitant]
     Active Substance: MYCOPHENOLATE MOFETIL
  3. CYCLOSPORINE [Concomitant]
     Active Substance: CYCLOSPORINE

REACTIONS (4)
  - Proteinuria [Unknown]
  - Infusion related reaction [Unknown]
  - Hypogammaglobulinaemia [Recovered/Resolved]
  - Off label use [Unknown]

NARRATIVE: CASE EVENT DATE: 20141201
